FAERS Safety Report 7217210-0 (Version None)
Quarter: 2011Q1

REPORT INFORMATION
  Report Type: 
  Country: None (occurrence: None)
  Receive Date: 20110110
  Receipt Date: 20110104
  Transmission Date: 20110831
  Serious: Yes (Hospitalization)
  Sender: FDA-Public Use
  Company Number: US-JNJFOC-20101207044

PATIENT
  Sex: Male

DRUGS (1)
  1. TOPIRAMATE [Suspect]
     Indication: CONVULSION
     Route: 048

REACTIONS (2)
  - LOSS OF CONSCIOUSNESS [None]
  - GRAND MAL CONVULSION [None]
